FAERS Safety Report 18013641 (Version 5)
Quarter: 2021Q3

REPORT INFORMATION
  Report Type: Spontaneous
  Country: US (occurrence: US)
  Receive Date: 20200713
  Receipt Date: 20210702
  Transmission Date: 20211014
  Serious: Yes (Other)
  Sender: FDA-Public Use
  Company Number: US-GILEAD-2020-0481303

PATIENT
  Age: 53 Year
  Sex: Male
  Weight: 90.7 kg

DRUGS (60)
  1. TRUVADA [Suspect]
     Active Substance: EMTRICITABINE\TENOFOVIR DISOPROXIL FUMARATE
     Dosage: UNK
     Route: 048
     Dates: start: 20141218, end: 20151021
  2. VIREAD [Suspect]
     Active Substance: TENOFOVIR DISOPROXIL FUMARATE
     Indication: HIV INFECTION
     Dosage: UNK
     Route: 065
     Dates: start: 20040715, end: 20061228
  3. TIVICAY [Concomitant]
     Active Substance: DOLUTEGRAVIR SODIUM
  4. ASPIRIN [ACETYLSALICYLIC ACID] [Concomitant]
     Active Substance: ASPIRIN
  5. HALOPERIDOL. [Concomitant]
     Active Substance: HALOPERIDOL
  6. ZERIT [Concomitant]
     Active Substance: STAVUDINE
  7. TRUVADA [Suspect]
     Active Substance: EMTRICITABINE\TENOFOVIR DISOPROXIL FUMARATE
     Dosage: UNK
     Route: 048
     Dates: start: 20151021, end: 20160607
  8. TRUVADA [Suspect]
     Active Substance: EMTRICITABINE\TENOFOVIR DISOPROXIL FUMARATE
     Dosage: UNK
     Route: 048
     Dates: start: 20070213, end: 20131213
  9. DESCOVY [Concomitant]
     Active Substance: EMTRICITABINE\TENOFOVIR ALAFENAMIDE FUMARATE
  10. EPIVIR [Concomitant]
     Active Substance: LAMIVUDINE
  11. ISENTRESS [Concomitant]
     Active Substance: RALTEGRAVIR POTASSIUM
  12. KALETRA [Concomitant]
     Active Substance: LOPINAVIR\RITONAVIR
  13. PIFELTRO [Concomitant]
     Active Substance: DORAVIRINE
  14. VOLTAREN [DICLOFENAC] [Concomitant]
     Active Substance: DICLOFENAC SODIUM
  15. LORAZEPAM. [Concomitant]
     Active Substance: LORAZEPAM
  16. METRONIDAZOLE. [Concomitant]
     Active Substance: METRONIDAZOLE
  17. NYSTATIN. [Concomitant]
     Active Substance: NYSTATIN
  18. RISPERIDONE. [Concomitant]
     Active Substance: RISPERIDONE
  19. OLANZAPINE. [Concomitant]
     Active Substance: OLANZAPINE
  20. TRUVADA [Suspect]
     Active Substance: EMTRICITABINE\TENOFOVIR DISOPROXIL FUMARATE
     Indication: HIV INFECTION
     Dosage: UNK
     Route: 048
     Dates: start: 201409, end: 201710
  21. DOXYCYCLINE. [Concomitant]
     Active Substance: DOXYCYCLINE
  22. AMBIEN [Concomitant]
     Active Substance: ZOLPIDEM TARTRATE
  23. DOCUSATE [Concomitant]
     Active Substance: DOCUSATE
  24. BENZTROPINE [BENZATROPINE] [Concomitant]
     Active Substance: BENZTROPINE
  25. TRUVADA [Suspect]
     Active Substance: EMTRICITABINE\TENOFOVIR DISOPROXIL FUMARATE
     Dosage: UNK
     Route: 048
     Dates: start: 20061228, end: 200702
  26. MELOXICAM. [Concomitant]
     Active Substance: MELOXICAM
  27. ESCITALOPRAM [Concomitant]
     Active Substance: ESCITALOPRAM OXALATE
  28. BENADRYL [Concomitant]
     Active Substance: DIPHENHYDRAMINE HYDROCHLORIDE
  29. TRUVADA [Suspect]
     Active Substance: EMTRICITABINE\TENOFOVIR DISOPROXIL FUMARATE
     Dosage: UNK
     Route: 048
     Dates: start: 2007, end: 20160607
  30. TRUVADA [Suspect]
     Active Substance: EMTRICITABINE\TENOFOVIR DISOPROXIL FUMARATE
     Dosage: UNK
     Route: 048
     Dates: start: 20170317, end: 20180108
  31. ODEFSEY [Concomitant]
     Active Substance: EMTRICITABINE\RILPIVIRINE HYDROCHLORIDE\TENOFOVIR ALAFENAMIDE FUMARATE
  32. ACYCLOVIR [ACICLOVIR] [Concomitant]
     Active Substance: ACYCLOVIR
  33. BACTRIM [Concomitant]
     Active Substance: SULFAMETHOXAZOLE\TRIMETHOPRIM
  34. ANDROGEL [Concomitant]
     Active Substance: TESTOSTERONE
  35. CRIXIVAN [Concomitant]
     Active Substance: INDINAVIR SULFATE
  36. VIRAMUNE [Concomitant]
     Active Substance: NEVIRAPINE
  37. EDURANT [Concomitant]
     Active Substance: RILPIVIRINE HYDROCHLORIDE
  38. SELZENTRY [Concomitant]
     Active Substance: MARAVIROC
  39. ACETAMINOPHEN. [Concomitant]
     Active Substance: ACETAMINOPHEN
  40. TETRACYCLINE [Concomitant]
     Active Substance: TETRACYCLINE
  41. AXIRON [Concomitant]
     Active Substance: TESTOSTERONE
  42. FLUOROURACIL. [Concomitant]
     Active Substance: FLUOROURACIL
  43. AZITHROMYCIN ANHYDROUS. [Concomitant]
     Active Substance: AZITHROMYCIN ANHYDROUS
  44. BETAMETHASONE. [Concomitant]
     Active Substance: BETAMETHASONE
  45. COMPLERA [Suspect]
     Active Substance: EMTRICITABINE\RILPIVIRINE HYDROCHLORIDE\TENOFOVIR DISOPROXIL FUMARATE
     Dosage: UNK
     Route: 065
     Dates: start: 20180831, end: 20181012
  46. NORVIR [Concomitant]
     Active Substance: RITONAVIR
  47. VIRACEPT [Concomitant]
     Active Substance: NELFINAVIR MESYLATE
  48. OMEPRAZOLE. [Concomitant]
     Active Substance: OMEPRAZOLE
  49. ZIAGEN [Concomitant]
     Active Substance: ABACAVIR SULFATE
  50. LOPERAMIDE [Concomitant]
     Active Substance: LOPERAMIDE
  51. COMPLERA [Suspect]
     Active Substance: EMTRICITABINE\RILPIVIRINE HYDROCHLORIDE\TENOFOVIR DISOPROXIL FUMARATE
     Indication: HIV INFECTION
     Dosage: UNK
     Route: 048
     Dates: start: 20180108, end: 20181012
  52. TRUVADA [Suspect]
     Active Substance: EMTRICITABINE\TENOFOVIR DISOPROXIL FUMARATE
     Dosage: UNK
     Route: 048
     Dates: start: 2007, end: 201801
  53. TRUVADA [Suspect]
     Active Substance: EMTRICITABINE\TENOFOVIR DISOPROXIL FUMARATE
     Dosage: UNK
     Route: 048
     Dates: start: 20131213, end: 20141218
  54. PREZISTA [Concomitant]
     Active Substance: DARUNAVIR ETHANOLATE
  55. ISONIAZID. [Concomitant]
     Active Substance: ISONIAZID
  56. PENICILLIN [PENICILLIN NOS] [Concomitant]
     Active Substance: PENICILLIN
  57. TESTOSTERONE. [Concomitant]
     Active Substance: TESTOSTERONE
  58. CELEBREX [Concomitant]
     Active Substance: CELECOXIB
  59. ERYTHROMYCIN. [Concomitant]
     Active Substance: ERYTHROMYCIN
  60. LEVOFLOXACIN. [Concomitant]
     Active Substance: LEVOFLOXACIN

REACTIONS (14)
  - Rib fracture [Recovered/Resolved]
  - Chronic kidney disease [Not Recovered/Not Resolved]
  - Osteoporosis [Not Recovered/Not Resolved]
  - Bone density decreased [Unknown]
  - Multiple fractures [Unknown]
  - Spinal osteoarthritis [Unknown]
  - Foot fracture [Recovered/Resolved]
  - Emotional distress [Unknown]
  - Lumbar vertebral fracture [Not Recovered/Not Resolved]
  - Myelitis [Recovered/Resolved]
  - Exercise tolerance decreased [Not Recovered/Not Resolved]
  - Mobility decreased [Not Recovered/Not Resolved]
  - Pain [Unknown]
  - Osteoarthritis [Unknown]

NARRATIVE: CASE EVENT DATE: 20150717
